FAERS Safety Report 7593824-3 (Version None)
Quarter: 2011Q3

REPORT INFORMATION
  Report Type: 
  Country: None (occurrence: None)
  Receive Date: 20110706
  Receipt Date: 20110623
  Transmission Date: 20111222
  Serious: Yes (Hospitalization)
  Sender: FDA-Public Use
  Company Number: CA-JNJFOC-20110611535

PATIENT
  Sex: Male
  Weight: 69 kg

DRUGS (3)
  1. REMICADE [Suspect]
     Indication: COLITIS ULCERATIVE
     Route: 042
     Dates: start: 20090818
  2. REMICADE [Suspect]
     Route: 042
     Dates: start: 20110324
  3. PENTASA [Concomitant]
     Dates: start: 20110609

REACTIONS (2)
  - SYNCOPE [None]
  - PERICARDITIS [None]
